FAERS Safety Report 18625143 (Version 3)
Quarter: 2021Q1

REPORT INFORMATION
  Report Type: Spontaneous
  Country: NA (occurrence: NA)
  Receive Date: 20201217
  Receipt Date: 20210225
  Transmission Date: 20210419
  Serious: Yes (Life-Threatening, Hospitalization, Disabling, Other)
  Sender: FDA-Public Use
  Company Number: ZA-ADVANZ PHARMA-202012010813

PATIENT

DRUGS (1)
  1. ALFUZOSIN [Suspect]
     Active Substance: ALFUZOSIN
     Indication: MUSCLE RELAXANT THERAPY
     Dosage: 10 MG, QD, PROLONGED?RELEASE TABLET
     Route: 048
     Dates: start: 20200814, end: 20200820

REACTIONS (6)
  - Fine motor skill dysfunction [Unknown]
  - Hypercholesterolaemia [Unknown]
  - Balance disorder [Unknown]
  - Ataxia [Unknown]
  - Cerebellar stroke [Unknown]
  - Cerebellar infarction [Unknown]

NARRATIVE: CASE EVENT DATE: 2020
